FAERS Safety Report 6620899-8 (Version None)
Quarter: 2010Q1

REPORT INFORMATION
  Report Type: 
  Country: None (occurrence: None)
  Receive Date: 20100309
  Receipt Date: 20100301
  Transmission Date: 20100710
  Serious: Yes (Other)
  Sender: FDA-Public Use
  Company Number: ES-PFIZER INC-2010026432

PATIENT
  Age: 60 Year
  Sex: Male

DRUGS (4)
  1. ZARATOR [Suspect]
     Indication: HYPERLIPIDAEMIA
     Dosage: 10 MG,
     Route: 048
     Dates: start: 20091001, end: 20091201
  2. METFORMIN HCL [Concomitant]
     Indication: TYPE 2 DIABETES MELLITUS
     Dosage: 850 MG, UNK
     Route: 048
  3. INSULATARD NOVOLET [Concomitant]
     Indication: TYPE 2 DIABETES MELLITUS
     Dosage: 100 U/ML
     Route: 058
  4. NOVOMIX [Concomitant]
     Indication: TYPE 2 DIABETES MELLITUS
     Dosage: 30 FLEXIPEN 100 U/ML

REACTIONS (1)
  - ERECTILE DYSFUNCTION [None]
